FAERS Safety Report 5145480-1 (Version None)
Quarter: 2006Q4

REPORT INFORMATION
  Report Type: 
  Country: None (occurrence: None)
  Receive Date: 20061101
  Receipt Date: 20061013
  Transmission Date: 20070319
  Serious: Yes (Other)
  Sender: FDA-Public Use
  Company Number: US200610002497

PATIENT
  Age: 70 Year
  Sex: Female

DRUGS (2)
  1. FORTEO [Suspect]
     Indication: OSTEOPOROSIS
     Dates: start: 20060715
  2. FORTEO [Concomitant]

REACTIONS (4)
  - NERVOUS SYSTEM DISORDER [None]
  - NON-SMALL CELL LUNG CANCER [None]
  - PHARMACEUTICAL PRODUCT COMPLAINT [None]
  - VOCAL CORD DISORDER [None]
